FAERS Safety Report 13130227 (Version 1)
Quarter: 2017Q1

REPORT INFORMATION
  Report Type: Spontaneous
  Country: US (occurrence: US)
  Receive Date: 20170119
  Receipt Date: 20170119
  Transmission Date: 20170428
  Serious: No
  Sender: FDA-Public Use
  Company Number: US-GLAXOSMITHKLINE-US2017006607

PATIENT
  Age: 72 Year
  Sex: Female

DRUGS (2)
  1. BREO ELLIPTA [Suspect]
     Active Substance: FLUTICASONE FUROATE\VILANTEROL TRIFENATATE
     Indication: DYSPNOEA
     Dosage: 1 PUFF(S), BID
     Route: 055
     Dates: start: 20170116
  2. BROVANA [Suspect]
     Active Substance: ARFORMOTEROL TARTRATE
     Indication: DYSPNOEA
     Route: 055
     Dates: start: 201311

REACTIONS (8)
  - Off label use [Unknown]
  - Dyspnoea [Unknown]
  - Psychomotor hyperactivity [Unknown]
  - Drug dose omission [Unknown]
  - Prescribed overdose [Unknown]
  - Wrong technique in product usage process [Unknown]
  - Drug interaction [Unknown]
  - Drug ineffective [Unknown]

NARRATIVE: CASE EVENT DATE: 20170116
